FAERS Safety Report 4396482-4 (Version None)
Quarter: 2004Q3

REPORT INFORMATION
  Report Type: 
  Country: None (occurrence: None)
  Receive Date: 20040709
  Receipt Date: 20040625
  Transmission Date: 20050211
  Serious: Yes (Other)
  Sender: FDA-Public Use
  Company Number: FR-JNJFOC-20040700115

PATIENT

DRUGS (1)
  1. ABCIXIMAB (ABCIXIMAB) INJECTION [Suspect]
     Indication: ACUTE MYOCARDIAL INFARCTION
     Dosage: SEE IMAGE INTRAVENOUS
     Route: 042

REACTIONS (1)
  - MYOCARDIAL INFARCTION [None]
